FAERS Safety Report 17149310 (Version 3)
Quarter: 2020Q1

REPORT INFORMATION
  Report Type: Report from Study
  Country: US (occurrence: US)
  Receive Date: 20191213
  Receipt Date: 20200228
  Transmission Date: 20200409
  Serious: Yes (Other)
  Sender: FDA-Public Use
  Company Number: NVSC2019US068674

PATIENT
  Sex: Female

DRUGS (1)
  1. GILENYA [Suspect]
     Active Substance: FINGOLIMOD HYDROCHLORIDE
     Indication: MULTIPLE SCLEROSIS
     Dosage: 0.5 MG, QD
     Route: 048
     Dates: start: 20190905

REACTIONS (7)
  - Hemiparesis [Unknown]
  - Glaucoma [Unknown]
  - Ocular discomfort [Unknown]
  - Back pain [Unknown]
  - Pain in extremity [Unknown]
  - Movement disorder [Unknown]
  - Vision blurred [Unknown]
